FAERS Safety Report 9662340 (Version 2)
Quarter: 2013Q4

REPORT INFORMATION
  Report Type: Spontaneous
  Country: US (occurrence: US)
  Receive Date: 20131031
  Receipt Date: 20131031
  Transmission Date: 20140711
  Serious: No
  Sender: FDA-Public Use
  Company Number: US-PURDUE-USA-2011-0063244

PATIENT
  Sex: Male

DRUGS (2)
  1. OXYCONTIN (NDA 22-272) [Suspect]
     Indication: NEUROPATHY PERIPHERAL
     Dosage: 80 MG, BID
     Dates: start: 201011
  2. OXYCONTIN (NDA 22-272) [Suspect]
     Indication: SPINAL DISORDER
     Dosage: 160 MG, BID
     Dates: start: 201011

REACTIONS (2)
  - Medication residue present [Not Recovered/Not Resolved]
  - Inadequate analgesia [Unknown]
